FAERS Safety Report 23763204 (Version 2)
Quarter: 2024Q2

REPORT INFORMATION
  Report Type: Spontaneous
  Country: US (occurrence: US)
  Receive Date: 20240419
  Receipt Date: 20240424
  Transmission Date: 20240716
  Serious: No
  Sender: FDA-Public Use
  Company Number: US-BIOGEN-2022BI01140893

PATIENT
  Age: 59 Year
  Sex: Female

DRUGS (6)
  1. VUMERITY [Suspect]
     Active Substance: DIROXIMEL FUMARATE
     Indication: Multiple sclerosis
     Dosage: MAINTENANCE DOSE
     Route: 050
     Dates: start: 20220701, end: 20240313
  2. VUMERITY [Suspect]
     Active Substance: DIROXIMEL FUMARATE
     Dosage: 2 PILLS A DAY INSTEAD OF 4 PILLS A DAY
     Route: 050
     Dates: start: 2024
  3. ASPIRIN [Concomitant]
     Active Substance: ASPIRIN
     Route: 050
  4. ATORVASTATIN CALCIUM [Concomitant]
     Active Substance: ATORVASTATIN CALCIUM
     Route: 050
  5. HYDROCHLOROTHIAZIDE [Concomitant]
     Active Substance: HYDROCHLOROTHIAZIDE
     Route: 050
  6. CHLORASEPTIC SORE THROAT [Concomitant]
     Active Substance: PHENOL
     Route: 050

REACTIONS (13)
  - Intentional product misuse [Recovered/Resolved]
  - Multiple sclerosis [Unknown]
  - Peripheral swelling [Unknown]
  - Throat irritation [Unknown]
  - Limb injury [Unknown]
  - Abdominal pain lower [Unknown]
  - Overweight [Unknown]
  - Hemihypoaesthesia [Unknown]
  - Headache [Unknown]
  - Back pain [Unknown]
  - Hemiparaesthesia [Unknown]
  - Muscular weakness [Unknown]
  - Cough [Recovered/Resolved]

NARRATIVE: CASE EVENT DATE: 20221001
